FAERS Safety Report 10428381 (Version 3)
Quarter: 2014Q3

REPORT INFORMATION
  Report Type: Spontaneous
  Country: CA (occurrence: CA)
  Receive Date: 20140903
  Receipt Date: 20140923
  Transmission Date: 20150326
  Serious: Yes (Hospitalization)
  Sender: FDA-Public Use
  Company Number: CA-GLAXOSMITHKLINE-A1087149A

PATIENT
  Sex: Male

DRUGS (2)
  1. TAFINLAR [Suspect]
     Active Substance: DABRAFENIB MESYLATE
     Indication: METASTATIC MALIGNANT MELANOMA
     Dosage: 300MG PER DAY
     Route: 065
  2. STEROIDS [Concomitant]
     Active Substance: UNSPECIFIED INGREDIENT

REACTIONS (8)
  - Depressed level of consciousness [Recovering/Resolving]
  - Hypotension [Unknown]
  - Urinary tract infection [Unknown]
  - Dysphagia [Recovering/Resolving]
  - Fatigue [Unknown]
  - Decubitus ulcer [Not Recovered/Not Resolved]
  - Choking [Unknown]
  - Investigation [Unknown]
